FAERS Safety Report 16188911 (Version 2)
Quarter: 2019Q3

REPORT INFORMATION
  Report Type: Spontaneous
  Country: CA (occurrence: CA)
  Receive Date: 20190412
  Receipt Date: 20190827
  Transmission Date: 20191004
  Serious: Yes (Death, Other)
  Sender: FDA-Public Use
  Company Number: CA-SA-2019SA100775

PATIENT
  Age: 52 Year
  Sex: Female

DRUGS (2)
  1. LEMTRADA [Suspect]
     Active Substance: ALEMTUZUMAB
     Dosage: 12 MG, QD
     Route: 042
     Dates: start: 20161205, end: 20161209
  2. LEMTRADA [Suspect]
     Active Substance: ALEMTUZUMAB
     Indication: MULTIPLE SCLEROSIS
     Dosage: 12 MG QD
     Route: 042
     Dates: start: 20171211, end: 20171213

REACTIONS (8)
  - Respiratory arrest [Fatal]
  - Influenza B virus test positive [Fatal]
  - Lung infection [Fatal]
  - Acute respiratory failure [Fatal]
  - Pneumonia [Fatal]
  - Disseminated intravascular coagulation [Fatal]
  - Pneumonia staphylococcal [Fatal]
  - Haemoptysis [Fatal]

NARRATIVE: CASE EVENT DATE: 2018
